FAERS Safety Report 11934308 (Version 1)
Quarter: 2016Q1

REPORT INFORMATION
  Report Type: Spontaneous
  Country: US (occurrence: None)
  Receive Date: 20160120
  Receipt Date: 20160120
  Transmission Date: 20160526
  Serious: No
  Sender: FDA-Public Use
  Company Number: None

PATIENT
  Age: 42 Year
  Sex: Female

DRUGS (1)
  1. HUMIRA [Suspect]
     Active Substance: ADALIMUMAB
     Indication: CROHN^S DISEASE
     Dosage: Q2WKS
     Route: 058
     Dates: start: 20130214, end: 20151224

REACTIONS (7)
  - Hypersensitivity [None]
  - Alopecia [None]
  - Rash pruritic [None]
  - Skin ulcer [None]
  - Dyspnoea [None]
  - Swelling face [None]
  - Contraindicated drug administered [None]

NARRATIVE: CASE EVENT DATE: 20151224
